FAERS Safety Report 7288580-2 (Version None)
Quarter: 2011Q1

REPORT INFORMATION
  Report Type: 
  Country: None (occurrence: None)
  Receive Date: 20110211
  Receipt Date: 20110131
  Transmission Date: 20110831
  Serious: Yes (Disabling, Other)
  Sender: FDA-Public Use
  Company Number: US-ELI_LILLY_AND_COMPANY-US201102000314

PATIENT
  Age: 44 Year
  Sex: Female
  Weight: 75.737 kg

DRUGS (12)
  1. LYRICA [Concomitant]
     Indication: FIBROMYALGIA
     Dosage: 50 MG, 2/D
     Route: 048
     Dates: end: 20110101
  2. GLIPIZIDE [Concomitant]
     Indication: DIABETES MELLITUS
     Dosage: 5 MG, DAILY (1/D)
     Route: 048
  3. TIZANIDINE [Concomitant]
     Indication: MUSCLE RELAXANT THERAPY
     Dosage: 4 MG, DAILY (1/D)
  4. VITAMIN B-12 [Concomitant]
     Indication: VITAMIN SUPPLEMENTATION
  5. ZOLPIDEM [Concomitant]
     Indication: SLEEP DISORDER
     Dosage: 5 MG, UNK
  6. IMITREX [Concomitant]
     Indication: MIGRAINE
     Dosage: 100 MG, DAILY (1/D)
     Route: 048
  7. POTASSIUM CHLORIDE [Concomitant]
     Dosage: 10 MEQ, DAILY (1/D)
     Route: 048
  8. ZOLPIDEM [Concomitant]
     Dosage: 10 MG, UNK
  9. BYETTA [Concomitant]
     Indication: DIABETES MELLITUS
     Dosage: 10 MG, DAILY (1/D)
  10. MAZEPINE [Concomitant]
     Route: 048
  11. CALCIUM CARBONATE [Concomitant]
     Dosage: 25 MG, UNK
  12. CYMBALTA [Suspect]
     Indication: NEUROPATHY PERIPHERAL
     Route: 048

REACTIONS (7)
  - DRY MOUTH [None]
  - NAUSEA [None]
  - MALAISE [None]
  - MUSCULOSKELETAL STIFFNESS [None]
  - VISION BLURRED [None]
  - ABASIA [None]
  - PAIN [None]
